FAERS Safety Report 4569993-6 (Version None)
Quarter: 2005Q1

REPORT INFORMATION
  Report Type: 
  Country: None (occurrence: None)
  Receive Date: 20050126
  Receipt Date: 20050126
  Transmission Date: 20050727
  Serious: Yes (Other)
  Sender: FDA-Public Use
  Company Number: None

PATIENT
  Sex: Male
  Weight: 39 kg

DRUGS (2)
  1. VASOTEC [Suspect]
     Indication: CONGENITAL CYSTIC KIDNEY DISEASE
     Dosage: 2 PO AM 1 PO PM
     Route: 048
  2. VASOTEC [Suspect]
     Indication: TUBEROUS SCLEROSIS
     Dosage: 2 PO AM 1 PO PM
     Route: 048

REACTIONS (2)
  - DRUG EFFECT DECREASED [None]
  - PHARMACEUTICAL PRODUCT COMPLAINT [None]
